APPROVED DRUG PRODUCT: PROCHLORPERAZINE MALEATE
Active Ingredient: PROCHLORPERAZINE MALEATE
Strength: EQ 10MG BASE
Dosage Form/Route: TABLET;ORAL
Application: A218912 | Product #002 | TE Code: AB
Applicant: LEADING PHARMA LLC
Approved: Sep 30, 2024 | RLD: No | RS: No | Type: RX